FAERS Safety Report 7415165-7 (Version None)
Quarter: 2011Q2

REPORT INFORMATION
  Report Type: 
  Country: None (occurrence: None)
  Receive Date: 20110414
  Receipt Date: 20110404
  Transmission Date: 20111010
  Serious: Yes (Other)
  Sender: FDA-Public Use
  Company Number: PHHY2011AR27751

PATIENT

DRUGS (1)
  1. CLOZAPINE [Suspect]
     Dosage: 500 MG

REACTIONS (3)
  - DISORIENTATION [None]
  - PSYCHIATRIC DECOMPENSATION [None]
  - HALLUCINATION [None]
